FAERS Safety Report 4334705-8 (Version None)
Quarter: 2004Q2

REPORT INFORMATION
  Report Type: 
  Country: None (occurrence: None)
  Receive Date: 20040407
  Receipt Date: 20040407
  Transmission Date: 20050107
  Serious: Yes (Other)
  Sender: FDA-Public Use
  Company Number: None

PATIENT
  Age: 45 Year
  Sex: Female
  Weight: 91.8534 kg

DRUGS (13)
  1. ARAVA [Suspect]
     Indication: RHEUMATOID ARTHRITIS
     Dosage: 20 MG QD
     Dates: start: 20040116, end: 20040405
  2. FLONASE [Concomitant]
  3. ENBREL [Concomitant]
  4. CENESTIN [Concomitant]
  5. FUROSEMIDE [Concomitant]
  6. FOLIC ACID [Concomitant]
  7. PRILOSEC [Concomitant]
  8. AMITRIPTYLINE HCL [Concomitant]
  9. VICODIN [Concomitant]
  10. MINOCYCLINE HCL [Concomitant]
  11. LISINOPRIL [Concomitant]
  12. CELEXA [Concomitant]
  13. CALCIUM CITRATE [Concomitant]

REACTIONS (1)
  - XANTHOMA [None]
